FAERS Safety Report 15603915 (Version 1)
Quarter: 2018Q4

REPORT INFORMATION
  Report Type: Spontaneous
  Country: BE (occurrence: BE)
  Receive Date: 20181109
  Receipt Date: 20181109
  Transmission Date: 20190205
  Serious: Yes (Other)
  Sender: FDA-Public Use
  Company Number: BE-ELI_LILLY_AND_COMPANY-BE201811001291

PATIENT
  Age: 52 Year
  Sex: Female

DRUGS (2)
  1. ZYPADHERA [Suspect]
     Active Substance: OLANZAPINE PAMOATE
     Indication: PRODUCT USED FOR UNKNOWN INDICATION
     Dosage: 405 MG, MONTHLY (1/M)
     Route: 065
     Dates: end: 20181102
  2. ZYPADHERA [Suspect]
     Active Substance: OLANZAPINE PAMOATE
     Dosage: 300 MG, MONTHLY (1/M)
     Route: 065
     Dates: start: 20181102

REACTIONS (6)
  - Malaise [Unknown]
  - Agitation [Unknown]
  - Psychomotor retardation [Unknown]
  - Post-injection delirium sedation syndrome [Unknown]
  - Executive dysfunction [Unknown]
  - Urinary incontinence [Unknown]

NARRATIVE: CASE EVENT DATE: 20181102
